FAERS Safety Report 9528162 (Version 1)
Quarter: 2013Q1

REPORT INFORMATION
  Report Type: Spontaneous
  Country: US (occurrence: None)
  Receive Date: 20130318
  Receipt Date: 20130318
  Transmission Date: 20140127
  Serious: Yes (Other)
  Sender: FDA-Public Use
  Company Number: 163-21660-11080213

PATIENT
  Sex: 0

DRUGS (1)
  1. ABRAXANE [Suspect]
     Indication: PANCREATIC CARCINOMA
     Dosage: 100 MG/M2, DAYS 1, 8, AND 15 OF A 28- DAY CYCLE., IV
     Route: 042

REACTIONS (11)
  - Febrile neutropenia [None]
  - Hypocalcaemia [None]
  - Thrombocytopenia [None]
  - Fatigue [None]
  - Alopecia [None]
  - Nausea [None]
  - Neuropathy peripheral [None]
  - Vomiting [None]
  - Anaemia [None]
  - Decreased appetite [None]
  - Neutropenia [None]
